FAERS Safety Report 7051771-X (Version None)
Quarter: 2010Q4

REPORT INFORMATION
  Report Type: 
  Country: None (occurrence: None)
  Receive Date: 20101019
  Receipt Date: 20101014
  Transmission Date: 20110411
  Serious: Yes (Death, Life-Threatening, Hospitalization)
  Sender: FDA-Public Use
  Company Number: GB-ELI_LILLY_AND_COMPANY-GB200912006173

PATIENT
  Sex: Male

DRUGS (11)
  1. PEMETREXED [Suspect]
     Indication: NON-SMALL CELL LUNG CANCER
     Dosage: 500 MG/M2, DAY 1 EVERY 21 DAYS
     Route: 042
     Dates: start: 20091209
  2. CISPLATIN [Suspect]
     Indication: NON-SMALL CELL LUNG CANCER
     Dosage: 75 MG/M2, DAY 1 EVERY 21 DAYS
     Route: 042
     Dates: start: 20091209
  3. FOLIC ACID [Concomitant]
     Indication: PROPHYLAXIS
     Dates: start: 20091126
  4. VITAMIN B-12 [Concomitant]
     Indication: PROPHYLAXIS
     Dates: start: 20091126, end: 20091126
  5. DEXAMETHASONE [Concomitant]
     Indication: PROPHYLAXIS
     Dates: start: 20091208, end: 20091208
  6. MST [Concomitant]
     Indication: ANALGESIC THERAPY
     Dates: start: 20091113
  7. SEVREDOL [Concomitant]
     Indication: ANALGESIC THERAPY
     Dates: start: 20091113
  8. PARACETAMOL [Concomitant]
     Indication: ANALGESIC THERAPY
  9. RANITIDINE [Concomitant]
     Indication: DYSPEPSIA
     Dates: start: 20070101
  10. SIMVASTATIN [Concomitant]
     Indication: PROPHYLAXIS
     Dates: start: 20060101
  11. OXYGEN [Concomitant]
     Dates: start: 20091224, end: 20091228

REACTIONS (3)
  - DYSPNOEA [None]
  - PNEUMONIA [None]
  - PULMONARY EMBOLISM [None]
